FAERS Safety Report 17214175 (Version 1)
Quarter: 2019Q4

REPORT INFORMATION
  Report Type: Spontaneous
  Country: US (occurrence: US)
  Receive Date: 20191230
  Receipt Date: 20191230
  Transmission Date: 20200122
  Serious: No
  Sender: FDA-Public Use
  Company Number: US-PFIZER INC-2019556586

PATIENT
  Age: 37 Year
  Sex: Male

DRUGS (1)
  1. CAMPTOSAR [Suspect]
     Active Substance: IRINOTECAN HYDROCHLORIDE
     Indication: SMALL INTESTINE CARCINOMA
     Dosage: 300.40 MG, CYCLIC (EVERY 14 DAYS )
     Dates: start: 20191223

REACTIONS (2)
  - Product use in unapproved indication [Unknown]
  - Off label use [Unknown]
